FAERS Safety Report 21568258 (Version 2)
Quarter: 2022Q4

REPORT INFORMATION
  Report Type: Spontaneous
  Country: US (occurrence: US)
  Receive Date: 20221108
  Receipt Date: 20221125
  Transmission Date: 20230112
  Serious: Yes (Hospitalization)
  Sender: FDA-Public Use
  Company Number: US-TEVA-2022-US-2823527

PATIENT
  Age: 35 Year
  Sex: Male

DRUGS (11)
  1. HYDROMORPHONE [Suspect]
     Active Substance: HYDROMORPHONE
     Indication: Sickle cell anaemia with crisis
     Route: 048
  2. HYDROMORPHONE [Suspect]
     Active Substance: HYDROMORPHONE
     Dosage: ESCALATING DOSES FROM 4MG PER DAY TO 16MG PER DAY
     Route: 048
  3. HYDROMORPHONE [Suspect]
     Active Substance: HYDROMORPHONE
     Dosage: 1 TO 2MG EVERY 2 HOURS AS NEEDED
     Route: 042
  4. HYDROMORPHONE [Suspect]
     Active Substance: HYDROMORPHONE
     Dosage: INFUSION AT BASAL RATE OF 0.5MG PER HOUR AND 0.4MG EVERY 10 MINUTES BY DEMAND DOSE
     Route: 065
  5. HYDROMORPHONE [Suspect]
     Active Substance: HYDROMORPHONE
     Dosage: ESCALATION DOSES FROM AN AVERAGE OF 35MG PER DAY TO AN AVERAGE OF 80MG PER DAY
     Route: 042
  6. FOLIC ACID [Suspect]
     Active Substance: FOLIC ACID
     Indication: Sickle cell anaemia with crisis
     Dosage: 1 MILLIGRAM DAILY;
     Route: 065
  7. GABAPENTIN [Suspect]
     Active Substance: GABAPENTIN
     Indication: Sickle cell anaemia with crisis
     Dosage: 900 MILLIGRAM DAILY;
     Route: 065
  8. CELECOXIB [Suspect]
     Active Substance: CELECOXIB
     Indication: Sickle cell anaemia with crisis
     Dosage: 400 MILLIGRAM DAILY;
     Route: 065
  9. ACETAMINOPHEN [Suspect]
     Active Substance: ACETAMINOPHEN
     Indication: Sickle cell anaemia with crisis
     Route: 065
  10. DEXTROSE [Concomitant]
     Active Substance: DEXTROSE
     Indication: Product used for unknown indication
     Dosage: AT 125 ML/HOUR
     Route: 042
  11. SALINE [Concomitant]
     Active Substance: SODIUM CHLORIDE
     Indication: Product used for unknown indication
     Dosage: AT 125 ML/HOUR
     Route: 042

REACTIONS (2)
  - Hyperaesthesia [Unknown]
  - Drug ineffective [Unknown]
